FAERS Safety Report 8100870-X (Version None)
Quarter: 2012Q1

REPORT INFORMATION
  Report Type: 
  Country: None (occurrence: None)
  Receive Date: 20120129
  Receipt Date: 20111003
  Transmission Date: 20120608
  Serious: Yes (Hospitalization)
  Sender: FDA-Public Use
  Company Number: US-ABBOTT-11P-163-0852963-00

PATIENT
  Age: 83 Year
  Sex: Male

DRUGS (16)
  1. FLAGYL [Suspect]
     Indication: CHOLECYSTITIS INFECTIVE
  2. HUMIRA [Suspect]
     Indication: PSORIASIS
     Dates: start: 20080601
  3. NIASPAN [Concomitant]
     Indication: PRODUCT USED FOR UNKNOWN INDICATION
  4. UROXATRAL [Concomitant]
     Indication: PROSTATOMEGALY
     Dosage: 10 MG DAILY FOR 6 YEARS
     Route: 048
  5. METFORMIN HCL [Concomitant]
     Indication: DIABETES MELLITUS
     Dosage: 1500 MG DAILY
  6. GLIPIZIDE [Concomitant]
     Indication: DIABETES MELLITUS
     Dosage: TWICE A  DAY
     Route: 048
  7. ZOCOR [Concomitant]
     Indication: BLOOD CHOLESTEROL
     Route: 048
  8. PROSCAR [Concomitant]
     Indication: PROSTATOMEGALY
     Dosage: 5 MG DAILY
  9. IMDUR [Concomitant]
     Indication: CARDIOVASCULAR EVENT PROPHYLAXIS
  10. PLAVIX [Concomitant]
     Indication: PRODUCT USED FOR UNKNOWN INDICATION
     Dosage: 75 MG DAILY
  11. PURPLE ASTHMA INHALER [Concomitant]
     Indication: PRODUCT USED FOR UNKNOWN INDICATION
  12. CPAP [Concomitant]
     Indication: PRODUCT USED FOR UNKNOWN INDICATION
  13. ASPIRIN [Concomitant]
     Indication: PROPHYLAXIS
  14. RAMIPRIL [Concomitant]
     Indication: PRODUCT USED FOR UNKNOWN INDICATION
  15. AMLODIPINE [Concomitant]
     Indication: HYPERTENSION
  16. METOPROLOL TARTRATE [Concomitant]
     Indication: HYPERTENSION
     Dosage: FOR 4 YEARS
     Route: 048

REACTIONS (3)
  - ABDOMINAL PAIN [None]
  - NAUSEA [None]
  - CHOLECYSTITIS INFECTIVE [None]
